FAERS Safety Report 9799992 (Version 2)
Quarter: 2014Q1

REPORT INFORMATION
  Report Type: Spontaneous
  Country: US (occurrence: US)
  Receive Date: 20140106
  Receipt Date: 20140106
  Transmission Date: 20141002
  Serious: Yes (Hospitalization)
  Sender: FDA-Public Use
  Company Number: US-GILEAD-2010-0030482

PATIENT
  Age: 79 Year
  Sex: Male

DRUGS (13)
  1. LETAIRIS [Suspect]
     Indication: PULMONARY ARTERIAL HYPERTENSION
     Route: 048
  2. LASIX [Concomitant]
  3. METOPROLOL [Concomitant]
  4. ASA [Concomitant]
  5. AZATHIOPRINE [Concomitant]
  6. ALBUTEROL [Concomitant]
  7. PREDNISONE [Concomitant]
  8. LIPITOR [Concomitant]
  9. BACTRIM DS [Concomitant]
  10. FELODIPINE [Concomitant]
  11. TYLENOL P.M. [Concomitant]
  12. CYTRA-2 [Concomitant]
  13. MAGNESIUM OX [Concomitant]

REACTIONS (1)
  - Dyspnoea [Not Recovered/Not Resolved]
